FAERS Safety Report 8779637 (Version 2)
Quarter: 2012Q4

REPORT INFORMATION
  Report Type: 
  Country: GB (occurrence: GB)
  Receive Date: 20120913
  Receipt Date: 20120924
  Transmission Date: 20130627
  Serious: Yes (Other)
  Sender: FDA-Public Use
  Company Number: GB-JNJFOC-20120902134

PATIENT
  Age: 15 Year
  Sex: Female

DRUGS (5)
  1. CETIRIZINE HYDROCHLORIDE [Suspect]
     Route: 065
  2. CETIRIZINE HYDROCHLORIDE [Suspect]
     Indication: SEASONAL ALLERGY
     Route: 065
  3. ARIPIPRAZOLE [Interacting]
     Indication: PRODUCT USED FOR UNKNOWN INDICATION
     Route: 065
  4. LAMICTAL [Interacting]
     Indication: BIPOLAR DISORDER
     Route: 048
  5. NEXPLANON [Interacting]
     Indication: CONTRACEPTION
     Dosage: during first trimester of pregnancy
     Route: 059

REACTIONS (6)
  - Abortion spontaneous [Unknown]
  - Unintended pregnancy [Recovered/Resolved]
  - Drug interaction [Unknown]
  - Pregnancy with contraceptive device [Recovered/Resolved]
  - Exposure during pregnancy [Recovered/Resolved]
  - Metrorrhagia [Unknown]
